FAERS Safety Report 6078801-6 (Version None)
Quarter: 2009Q1

REPORT INFORMATION
  Report Type: 
  Country: None (occurrence: None)
  Receive Date: 20090216
  Receipt Date: 20080121
  Transmission Date: 20090719
  Serious: No
  Sender: FDA-Public Use
  Company Number: US-BAYER-200810374BCC

PATIENT
  Age: 11 Year
  Sex: Female

DRUGS (3)
  1. RID SHAMPOO [Suspect]
     Indication: LICE INFESTATION
     Route: 061
     Dates: start: 20080108
  2. RID MOUSSE [Suspect]
     Indication: LICE INFESTATION
     Route: 061
     Dates: start: 20080108
  3. NIX [Concomitant]

REACTIONS (2)
  - LICE INFESTATION [None]
  - PRURITUS [None]
